FAERS Safety Report 9554440 (Version 2)
Quarter: 2013Q4

REPORT INFORMATION
  Report Type: Spontaneous
  Country: US (occurrence: US)
  Receive Date: 20130925
  Receipt Date: 20131015
  Transmission Date: 20140711
  Serious: Yes (Other)
  Sender: FDA-Public Use
  Company Number: CHPA2013US014439

PATIENT
  Age: 62 Year
  Sex: Female

DRUGS (2)
  1. EXCEDRIN PM EXPRESS GELS [Suspect]
     Indication: INSOMNIA
     Dosage: 2 DF, PRN
     Route: 048
     Dates: start: 2005
  2. EXCEDRIN PM EXPRESS GELS [Suspect]
     Indication: OFF LABEL USE

REACTIONS (5)
  - Drug dependence [Recovered/Resolved]
  - Insomnia [Not Recovered/Not Resolved]
  - Disease recurrence [Not Recovered/Not Resolved]
  - Expired drug administered [Unknown]
  - Therapeutic response unexpected [Unknown]
